FAERS Safety Report 7559693-2 (Version None)
Quarter: 2011Q2

REPORT INFORMATION
  Report Type: 
  Country: None (occurrence: None)
  Receive Date: 20110621
  Receipt Date: 20110609
  Transmission Date: 20111010
  Serious: Yes (Hospitalization)
  Sender: FDA-Public Use
  Company Number: US-ELI_LILLY_AND_COMPANY-US201106005422

PATIENT
  Age: 54 Year
  Sex: Male

DRUGS (3)
  1. TRAMADOL HCL [Concomitant]
  2. CYMBALTA [Suspect]
     Dosage: UNK UNK, UNKNOWN
  3. CYMBALTA [Suspect]
     Indication: MAJOR DEPRESSION
     Dosage: 60 MG, UNKNOWN
     Dates: start: 20090101, end: 20110501

REACTIONS (4)
  - LETHARGY [None]
  - INCOHERENT [None]
  - DRUG INTERACTION [None]
  - CONFUSIONAL STATE [None]
